FAERS Safety Report 7584045-9 (Version None)
Quarter: 2011Q2

REPORT INFORMATION
  Report Type: 
  Country: None (occurrence: None)
  Receive Date: 20110628
  Receipt Date: 20110628
  Transmission Date: 20111010
  Serious: No
  Sender: FDA-Public Use
  Company Number: None

PATIENT
  Sex: Male
  Weight: 96.6162 kg

DRUGS (1)
  1. CONCERTA [Suspect]
     Indication: NARCOLEPSY
     Dosage: 27MG BID

REACTIONS (1)
  - NARCOLEPSY [None]
